FAERS Safety Report 4523376-3 (Version None)
Quarter: 2004Q4

REPORT INFORMATION
  Report Type: 
  Country: None (occurrence: None)
  Receive Date: 20041209
  Receipt Date: 20041203
  Transmission Date: 20050328
  Serious: Yes (Death)
  Sender: FDA-Public Use
  Company Number: 200415858BCC

PATIENT
  Age: 90 Year
  Sex: Female

DRUGS (6)
  1. ALEVE [Suspect]
     Indication: ARTHRALGIA
     Dosage: 440-660 MG, BID, ORAL
     Route: 048
  2. ASPIRIN [Suspect]
     Indication: MYOCARDIAL INFARCTION
     Dosage: ORAL
     Route: 048
  3. ASPIRIN [Suspect]
     Indication: PROPHYLAXIS
     Dosage: ORAL
     Route: 048
  4. PLAVIX [Concomitant]
  5. POTASSIUM [Concomitant]
  6. LASIX [Concomitant]

REACTIONS (1)
  - THROMBOSIS [None]
